FAERS Safety Report 12958205 (Version 1)
Quarter: 2016Q4

REPORT INFORMATION
  Report Type: Spontaneous
  Country: GB (occurrence: GB)
  Receive Date: 20161120
  Receipt Date: 20161120
  Transmission Date: 20170207
  Serious: Yes (Other)
  Sender: FDA-Public Use
  Company Number: GB-MYLANLABS-2016M1049230

PATIENT

DRUGS (2)
  1. AZATHIOPRINE. [Suspect]
     Active Substance: AZATHIOPRINE
     Dosage: 150 MG, QD
     Route: 048
     Dates: start: 201608
  2. AZATHIOPRINE. [Suspect]
     Active Substance: AZATHIOPRINE
     Indication: CROHN^S DISEASE
     Dosage: 125 MG, QD
     Route: 048
     Dates: start: 2015, end: 201608

REACTIONS (1)
  - Gynaecomastia [Unknown]
